FAERS Safety Report 4655628-0 (Version None)
Quarter: 2005Q2

REPORT INFORMATION
  Report Type: 
  Country: None (occurrence: None)
  Receive Date: 20050505
  Receipt Date: 20050414
  Transmission Date: 20051028
  Serious: Yes (Life-Threatening, Hospitalization)
  Sender: FDA-Public Use
  Company Number: US_0504115448

PATIENT
  Age: 15 Year
  Sex: Male
  Weight: 52 kg

DRUGS (4)
  1. HUMATROPE [Suspect]
     Indication: GROWTH HORMONE DEFICIENCY
     Dosage: 5.2 MG DAY
     Dates: start: 19990405, end: 20040201
  2. IMIPRAMINE [Concomitant]
  3. ZYRTEC [Concomitant]
  4. MINOCYCLINE HCL [Concomitant]

REACTIONS (6)
  - CONGESTIVE CARDIOMYOPATHY [None]
  - FAMILIAL RISK FACTOR [None]
  - INTRACARDIAC THROMBUS [None]
  - LABORATORY TEST ABNORMAL [None]
  - MYOCARDIAL INFARCTION [None]
  - VIRAL INFECTION [None]
